FAERS Safety Report 7319354-1 (Version None)
Quarter: 2011Q1

REPORT INFORMATION
  Report Type: 
  Country: None (occurrence: None)
  Receive Date: 20110228
  Receipt Date: 20100209
  Transmission Date: 20110831
  Serious: Yes (Other)
  Sender: FDA-Public Use
  Company Number: A0844323A

PATIENT
  Age: 16 Year
  Sex: Female

DRUGS (3)
  1. KLONOPIN [Concomitant]
  2. EFFEXOR [Concomitant]
     Dosage: 150MG THREE TIMES PER DAY
  3. LAMICTAL [Suspect]
     Dosage: 100MG PER DAY
     Route: 048
     Dates: start: 20100101

REACTIONS (1)
  - HALLUCINATION [None]
